FAERS Safety Report 10154612 (Version 1)
Quarter: 2014Q2

REPORT INFORMATION
  Report Type: Spontaneous
  Country: US (occurrence: US)
  Receive Date: 20140506
  Receipt Date: 20140506
  Transmission Date: 20141212
  Serious: No
  Sender: FDA-Public Use
  Company Number: US-PFIZER INC-2014120868

PATIENT
  Age: 21 Year
  Sex: Female
  Weight: 45.35 kg

DRUGS (1)
  1. ADVIL [Suspect]
     Indication: SUNBURN
     Dosage: 200 MG, ONCE
     Route: 048
     Dates: start: 20140429, end: 20140429

REACTIONS (3)
  - Off label use [Unknown]
  - Throat irritation [Not Recovered/Not Resolved]
  - Throat tightness [Not Recovered/Not Resolved]
